FAERS Safety Report 18101111 (Version 1)
Quarter: 2020Q3

REPORT INFORMATION
  Report Type: Report from Study
  Country: None (occurrence: US)
  Receive Date: 20200801
  Receipt Date: 20200801
  Transmission Date: 20201103
  Serious: Yes (Other)
  Sender: FDA-Public Use
  Company Number: US-ABBVIE-20K-163-3499767-00

PATIENT
  Age: 44 Year
  Sex: Female
  Weight: 93.07 kg

DRUGS (1)
  1. HUMIRA [Suspect]
     Active Substance: ADALIMUMAB
     Indication: HIDRADENITIS
     Route: 058
     Dates: start: 2018

REACTIONS (5)
  - Incision site impaired healing [Not Recovered/Not Resolved]
  - Hidradenitis [Not Recovered/Not Resolved]
  - Road traffic accident [Not Recovered/Not Resolved]
  - Adhesion [Not Recovered/Not Resolved]
  - Incision site complication [Not Recovered/Not Resolved]

NARRATIVE: CASE EVENT DATE: 201908
